FAERS Safety Report 8269708-4 (Version None)
Quarter: 2012Q2

REPORT INFORMATION
  Report Type: 
  Country: None (occurrence: None)
  Receive Date: 20120406
  Receipt Date: 20120329
  Transmission Date: 20120825
  Serious: Yes (Death)
  Sender: FDA-Public Use
  Company Number: IMP_05827_2012

PATIENT

DRUGS (1)
  1. CABERGOLINE [Suspect]
     Indication: FOETAL EXPOSURE DURING PREGNANCY
     Dosage: (DF)

REACTIONS (3)
  - CAESAREAN SECTION [None]
  - MATERNAL DRUGS AFFECTING FOETUS [None]
  - PREMATURE SEPARATION OF PLACENTA [None]
